FAERS Safety Report 7316629-7 (Version None)
Quarter: 2011Q1

REPORT INFORMATION
  Report Type: 
  Country: None (occurrence: None)
  Receive Date: 20110226
  Receipt Date: 20100720
  Transmission Date: 20110831
  Serious: No
  Sender: FDA-Public Use
  Company Number: US-ALLERGAN-1009477US

PATIENT
  Age: 43 Year
  Sex: Female

DRUGS (1)
  1. BOTOXA? [Suspect]
     Indication: MIGRAINE
     Dosage: UNK
     Route: 030
     Dates: start: 20100301, end: 20100301

REACTIONS (8)
  - RHINITIS [None]
  - TOOTHACHE [None]
  - EYELID PTOSIS [None]
  - APHONIA [None]
  - HEADACHE [None]
  - EYELID OEDEMA [None]
  - RHINORRHOEA [None]
  - PRURITUS [None]
